FAERS Safety Report 9456724 (Version 1)
Quarter: 2013Q3

REPORT INFORMATION
  Report Type: Spontaneous
  Country: US (occurrence: US)
  Receive Date: 20130813
  Receipt Date: 20130813
  Transmission Date: 20140515
  Serious: Yes (Hospitalization)
  Sender: FDA-Public Use
  Company Number: US-B.I. PHARMACEUTICALS,INC./RIDGEFIELD-2013-BI-23954BP

PATIENT
  Age: 63 Year
  Sex: Female
  Weight: 117 kg

DRUGS (2)
  1. PRADAXA [Suspect]
     Indication: ATRIAL FIBRILLATION
     Dosage: 300 MG
     Route: 048
     Dates: start: 201305, end: 20130601
  2. LANTUS INSULIN [Concomitant]
     Indication: DIABETES MELLITUS
     Dosage: 54 U
     Route: 058
     Dates: start: 2003

REACTIONS (2)
  - Cardiac valve disease [Recovered/Resolved]
  - Cerebrovascular accident [Recovered/Resolved with Sequelae]
